FAERS Safety Report 20072242 (Version 2)
Quarter: 2021Q4

REPORT INFORMATION
  Report Type: Report from Study
  Country: US (occurrence: US)
  Receive Date: 20211116
  Receipt Date: 20211129
  Transmission Date: 20220303
  Serious: Yes (Death, Other)
  Sender: FDA-Public Use
  Company Number: US-BAUSCH-BL-2021-037148

PATIENT
  Age: 67 Year
  Sex: Male

DRUGS (2)
  1. VISUDYNE [Suspect]
     Active Substance: VERTEPORFIN
     Indication: Malignant melanoma
     Route: 065
  2. VISUDYNE [Suspect]
     Active Substance: VERTEPORFIN
     Indication: Product use in unapproved indication

REACTIONS (3)
  - Complications of transplanted heart [Fatal]
  - Infection [Unknown]
  - Product use in unapproved indication [Unknown]
